FAERS Safety Report 17911996 (Version 1)
Quarter: 2020Q2

REPORT INFORMATION
  Report Type: Spontaneous
  Country: US (occurrence: US)
  Receive Date: 20200617
  Receipt Date: 20200617
  Transmission Date: 20200714
  Serious: Yes (Death)
  Sender: FDA-Public Use
  Company Number: None

PATIENT
  Age: 59 Year
  Sex: Male
  Weight: 123.3 kg

DRUGS (2)
  1. D5W 250ML [Suspect]
     Active Substance: DEXTROSE, UNSPECIFIED FORM
     Indication: PRODUCT USED FOR UNKNOWN INDICATION
     Dosage: ?          OTHER FREQUENCY:TITRATE;?
     Route: 041
     Dates: start: 20200615, end: 20200615
  2. HEPARIN [Suspect]
     Active Substance: HEPARIN SODIUM
     Indication: HYPERCOAGULATION
     Dosage: ?          OTHER FREQUENCY:TITRATE;?
     Route: 041
     Dates: start: 20200612, end: 20200617

REACTIONS (4)
  - Product dispensing error [None]
  - Activated partial thromboplastin time shortened [None]
  - Wrong product administered [None]
  - Product label confusion [None]

NARRATIVE: CASE EVENT DATE: 20200617
